FAERS Safety Report 6145822-4 (Version None)
Quarter: 2009Q2

REPORT INFORMATION
  Report Type: 
  Country: None (occurrence: None)
  Receive Date: 20090406
  Receipt Date: 20090406
  Transmission Date: 20091009
  Serious: No
  Sender: FDA-Public Use
  Company Number: None

PATIENT
  Sex: Female
  Weight: 73.0291 kg

DRUGS (4)
  1. SUN LABS DIVALPROATE SODIUM [Suspect]
     Indication: AFFECTIVE DISORDER
     Dosage: 1000 MG QID
     Dates: start: 20080811, end: 20080911
  2. SUN LABS DIVALPROATE SODIUM [Suspect]
     Indication: MIGRAINE
     Dosage: 1000 MG QID
     Dates: start: 20080811, end: 20080911
  3. MYLAN LABS DIVALPROATE SODIUM ER [Suspect]
     Indication: AFFECTIVE DISORDER
     Dosage: 1000 MG QID
     Dates: start: 20090211, end: 20090221
  4. MYLAN LABS DIVALPROATE SODIUM ER [Suspect]
     Indication: MIGRAINE
     Dosage: 1000 MG QID
     Dates: start: 20090211, end: 20090221

REACTIONS (10)
  - ANTICONVULSANT DRUG LEVEL DECREASED [None]
  - CONTUSION [None]
  - DIZZINESS [None]
  - MIGRAINE [None]
  - MYODESOPSIA [None]
  - PETIT MAL EPILEPSY [None]
  - PHOTOPHOBIA [None]
  - PRODUCT QUALITY ISSUE [None]
  - TREMOR [None]
  - VISUAL IMPAIRMENT [None]
